FAERS Safety Report 8215221-X (Version None)
Quarter: 2012Q1

REPORT INFORMATION
  Report Type: 
  Country: None (occurrence: None)
  Receive Date: 20120229
  Receipt Date: 20110131
  Transmission Date: 20120608
  Serious: Yes (Other)
  Sender: FDA-Public Use
  Company Number: PHHY2011US07538

PATIENT
  Age: 35 Year
  Sex: Female

DRUGS (2)
  1. NEORAL [Suspect]
     Indication: RENAL TRANSPLANT
     Dosage: 250 MG
     Dates: start: 20100613
  2. PREDNISONE TAB [Concomitant]

REACTIONS (4)
  - MATERNAL EXPOSURE DURING PREGNANCY [None]
  - INFANT [None]
  - FATIGUE [None]
  - RENAL IMPAIRMENT [None]
